FAERS Safety Report 9520131 (Version 1)
Quarter: 2013Q3

REPORT INFORMATION
  Report Type: Spontaneous
  Country: US (occurrence: US)
  Receive Date: 20130912
  Receipt Date: 20130912
  Transmission Date: 20140515
  Serious: No
  Sender: FDA-Public Use
  Company Number: US-BAYER-2013-110256

PATIENT
  Age: 70 Year
  Sex: Female
  Weight: 77 kg

DRUGS (7)
  1. ALEVE GELCAPS [Suspect]
     Indication: ARTHRITIS
     Dosage: 1 DF, ONCE
     Route: 048
     Dates: start: 20130910, end: 20130910
  2. CRESTOR [Concomitant]
  3. LISINOPRIL [Concomitant]
  4. METFORMIN [Concomitant]
  5. BAYER ASPIRIN [Concomitant]
  6. METOPROLOL [Concomitant]
  7. CALCIUM [CALCIUM,COLECALCIFEROL] [Concomitant]

REACTIONS (1)
  - Diarrhoea [Not Recovered/Not Resolved]
